FAERS Safety Report 6715842-7 (Version None)
Quarter: 2010Q2

REPORT INFORMATION
  Report Type: 
  Country: None (occurrence: None)
  Receive Date: 20100507
  Receipt Date: 20100428
  Transmission Date: 20101027
  Serious: Yes (Hospitalization)
  Sender: FDA-Public Use
  Company Number: US-JNJFOC-20100408144

PATIENT
  Age: 23 Year
  Sex: Male

DRUGS (2)
  1. RISPERDAL [Suspect]
     Indication: SCHIZOPHRENIA
     Dosage: 2MG PLUS 4 MG 2 IN AFETRNOON ORAL
     Route: 048
  2. RISPERDAL [Suspect]
     Dosage: 12MG 1 IN AM ORAL
     Route: 048

REACTIONS (5)
  - FREEZING PHENOMENON [None]
  - HALLUCINATION, AUDITORY [None]
  - MYALGIA [None]
  - SALIVARY HYPERSECRETION [None]
  - SEDATION [None]
